FAERS Safety Report 6455199-2 (Version None)
Quarter: 2009Q4

REPORT INFORMATION
  Report Type: 
  Country: None (occurrence: None)
  Receive Date: 20091119
  Receipt Date: 20091106
  Transmission Date: 20100525
  Serious: Yes (Hospitalization, Other)
  Sender: FDA-Public Use
  Company Number: 2009SP020705

PATIENT
  Age: 20 Year
  Sex: Female
  Weight: 83.9154 kg

DRUGS (2)
  1. NUVARING [Suspect]
     Indication: CONTRACEPTION
     Dosage: VAG
     Dates: start: 20040622, end: 20061201
  2. TYLENOL (CAPLET) [Concomitant]

REACTIONS (20)
  - ABORTION INDUCED [None]
  - BRONCHITIS [None]
  - CAESAREAN SECTION [None]
  - CHEST PAIN [None]
  - COUGH [None]
  - DEEP VEIN THROMBOSIS [None]
  - DRUG EXPOSURE DURING PREGNANCY [None]
  - HUMERUS FRACTURE [None]
  - MIGRAINE [None]
  - PHARYNGITIS [None]
  - PLEURAL EFFUSION [None]
  - PREGNANCY [None]
  - PULMONARY EMBOLISM [None]
  - PULMONARY THROMBOSIS [None]
  - PYREXIA [None]
  - TINEA CRURIS [None]
  - UPPER LIMB FRACTURE [None]
  - UPPER RESPIRATORY TRACT INFECTION [None]
  - VITAMIN B12 DECREASED [None]
  - VULVOVAGINITIS TRICHOMONAL [None]
